FAERS Safety Report 25927017 (Version 1)
Quarter: 2025Q4

REPORT INFORMATION
  Report Type: Report from Study
  Country: MX (occurrence: MX)
  Receive Date: 20251015
  Receipt Date: 20251015
  Transmission Date: 20260118
  Serious: Yes (Other)
  Sender: ABBVIE
  Company Number: MX-ABBVIE-6500152

PATIENT
  Age: 38 Year
  Sex: Female
  Weight: 87 kg

DRUGS (2)
  1. RINVOQ [Suspect]
     Active Substance: UPADACITINIB
     Indication: Spondylitis
     Dosage: FORM STRENGTH 15 MILLIGRAM
     Route: 048
     Dates: start: 20240123
  2. MICARDIS [Concomitant]
     Active Substance: TELMISARTAN
     Indication: Hypertension
     Dosage: 40/5 MG
     Route: 048

REACTIONS (4)
  - Lupus-like syndrome [Not Recovered/Not Resolved]
  - Vasculitis [Recovered/Resolved]
  - Histone antibody positive [Unknown]
  - Contusion [Unknown]

NARRATIVE: CASE EVENT DATE: 20250901
